FAERS Safety Report 11522479 (Version 1)
Quarter: 2015Q3

REPORT INFORMATION
  Report Type: Spontaneous
  Country: US (occurrence: US)
  Receive Date: 20150903
  Receipt Date: 20150903
  Transmission Date: 20151125
  Serious: No
  Sender: FDA-Public Use
  Company Number: US-ELI_LILLY_AND_COMPANY-US201211003564

PATIENT
  Age: 54 Year
  Sex: Female
  Weight: 78.91 kg

DRUGS (5)
  1. ATORVASTATIN [Concomitant]
     Active Substance: ATORVASTATIN
     Dosage: UNK, UNKNOWN
     Route: 065
  2. TOPAMAX [Concomitant]
     Active Substance: TOPIRAMATE
     Dosage: UNK, UNKNOWN
     Route: 065
  3. METFORMIN [Concomitant]
     Active Substance: METFORMIN HYDROCHLORIDE
     Dosage: UNK, UNKNOWN
     Route: 065
  4. BENICAR [Concomitant]
     Active Substance: OLMESARTAN MEDOXOMIL
     Dosage: UNK, UNKNOWN
     Route: 065
  5. CYMBALTA [Suspect]
     Active Substance: DULOXETINE HYDROCHLORIDE
     Indication: DEPRESSION
     Dosage: 60 MG, QD
     Route: 048
     Dates: end: 20121101

REACTIONS (27)
  - Eating disorder [Unknown]
  - Oxygen consumption decreased [Unknown]
  - Photopsia [Unknown]
  - Abnormal dreams [Unknown]
  - Fear [Unknown]
  - Migraine [Unknown]
  - Nausea [Unknown]
  - Drug dependence [Unknown]
  - Memory impairment [Unknown]
  - Condition aggravated [Unknown]
  - Hallucination [Unknown]
  - Somnolence [Unknown]
  - Hot flush [Unknown]
  - Disability [Unknown]
  - Head discomfort [Unknown]
  - Hunger [Unknown]
  - Disturbance in attention [Unknown]
  - Drug withdrawal syndrome [Unknown]
  - Dizziness [Unknown]
  - Hyperhidrosis [Unknown]
  - Respiratory tract congestion [Unknown]
  - Hyperventilation [Unknown]
  - Feeling abnormal [Unknown]
  - Visual impairment [Unknown]
  - Depression [Unknown]
  - Dysstasia [Unknown]
  - Dyspnoea [Unknown]
